FAERS Safety Report 6631661-4 (Version None)
Quarter: 2010Q1

REPORT INFORMATION
  Report Type: 
  Country: None (occurrence: None)
  Receive Date: 20100312
  Receipt Date: 20100305
  Transmission Date: 20100710
  Serious: Yes (Disabling, Other)
  Sender: FDA-Public Use
  Company Number: US-WYE-H13096010

PATIENT
  Sex: Female
  Weight: 59.02 kg

DRUGS (2)
  1. PREMPRO [Suspect]
     Indication: MENOPAUSAL SYMPTOMS
     Route: 048
     Dates: end: 20091118
  2. LIPITOR [Suspect]
     Dosage: NOT PROVIDED
     Dates: end: 20100107

REACTIONS (7)
  - ARTHRALGIA [None]
  - CATARACT [None]
  - DRUG WITHDRAWAL SYNDROME [None]
  - ESSENTIAL THROMBOCYTHAEMIA [None]
  - HOT FLUSH [None]
  - PAIN IN EXTREMITY [None]
  - RETINAL VEIN OCCLUSION [None]
